FAERS Safety Report 6014598-3 (Version None)
Quarter: 2008Q4

REPORT INFORMATION
  Report Type: 
  Country: None (occurrence: None)
  Receive Date: 20081219
  Receipt Date: 20081104
  Transmission Date: 20090506
  Serious: No
  Sender: FDA-Public Use
  Company Number: A0746592A

PATIENT
  Age: 71 Year
  Sex: Male
  Weight: 98.6 kg

DRUGS (8)
  1. AVODART [Suspect]
     Indication: BENIGN PROSTATIC HYPERPLASIA
     Dosage: .5MG PER DAY
     Route: 048
  2. LIPITOR [Concomitant]
     Route: 048
  3. VIAGRA [Concomitant]
     Dosage: 50MG PER DAY
     Route: 048
     Dates: start: 20080815
  4. ZOCOR [Concomitant]
     Dosage: 40MG PER DAY
     Route: 048
     Dates: start: 20080417
  5. AMBIEN [Concomitant]
     Dosage: 10MG AT NIGHT
     Route: 048
     Dates: start: 20071024
  6. ASPIRIN [Concomitant]
     Dosage: 81MG PER DAY
     Route: 048
  7. FISH OIL [Concomitant]
     Dosage: 1000MG TWICE PER DAY
     Route: 048
     Dates: start: 20071130
  8. MULTI-VITAMIN [Concomitant]
     Route: 048

REACTIONS (5)
  - BREAST ENLARGEMENT [None]
  - BREAST PAIN [None]
  - BREAST SWELLING [None]
  - BREAST TENDERNESS [None]
  - EJACULATION DISORDER [None]
